FAERS Safety Report 13815311 (Version 2)
Quarter: 2017Q3

REPORT INFORMATION
  Report Type: Spontaneous
  Country: JP (occurrence: JP)
  Receive Date: 20170731
  Receipt Date: 20170913
  Transmission Date: 20171127
  Serious: Yes (Hospitalization, Other)
  Sender: FDA-Public Use
  Company Number: JP-BAYER-2017-140502

PATIENT
  Age: 80 Year
  Sex: Male

DRUGS (5)
  1. XOFIGO [Suspect]
     Active Substance: RADIUM RA-223 DICHLORIDE
     Dosage: 55KBQ/KG
     Dates: start: 20170223, end: 20170223
  2. XOFIGO [Suspect]
     Active Substance: RADIUM RA-223 DICHLORIDE
     Dosage: 55KBQ/KG
  3. XOFIGO [Suspect]
     Active Substance: RADIUM RA-223 DICHLORIDE
     Dosage: 55KBQ/KG
  4. XOFIGO [Suspect]
     Active Substance: RADIUM RA-223 DICHLORIDE
     Dosage: 55KBQ/KG
     Dates: start: 20170622, end: 20170622
  5. XOFIGO [Suspect]
     Active Substance: RADIUM RA-223 DICHLORIDE
     Dosage: 55KBQ/KG

REACTIONS (3)
  - Pulmonary alveolar haemorrhage [Unknown]
  - Infection [None]
  - Haemoptysis [Unknown]

NARRATIVE: CASE EVENT DATE: 20170623
